FAERS Safety Report 24879808 (Version 1)
Quarter: 2025Q1

REPORT INFORMATION
  Report Type: Report from Study
  Country: US (occurrence: US)
  Receive Date: 20250123
  Receipt Date: 20250123
  Transmission Date: 20250409
  Serious: Yes (Other)
  Sender: TEVA
  Company Number: US-TEVA-VS-3288096

PATIENT
  Age: 70 Year
  Sex: Male

DRUGS (1)
  1. AUSTEDO [Suspect]
     Active Substance: DEUTETRABENAZINE
     Indication: Tardive dyskinesia
     Route: 065
     Dates: start: 20240710

REACTIONS (6)
  - Condition aggravated [Unknown]
  - Slow response to stimuli [Unknown]
  - Feeling abnormal [Unknown]
  - Dementia [Unknown]
  - Personality disorder [Unknown]
  - Staring [Unknown]

NARRATIVE: CASE EVENT DATE: 20241201
